FAERS Safety Report 6882854-2 (Version None)
Quarter: 2010Q3

REPORT INFORMATION
  Report Type: 
  Country: None (occurrence: None)
  Receive Date: 20100729
  Receipt Date: 20100723
  Transmission Date: 20110219
  Serious: Yes (Hospitalization)
  Sender: FDA-Public Use
  Company Number: GB-ROCHE-716998

PATIENT
  Sex: Female
  Weight: 81.7 kg

DRUGS (3)
  1. BEVACIZUMAB [Suspect]
     Indication: BREAST CANCER
     Dosage: CYCLE: 1
     Route: 065
     Dates: start: 20100709
  2. DOCETAXEL [Suspect]
     Indication: BREAST CANCER
     Dosage: CYCLE: 1
     Route: 065
     Dates: start: 20100709
  3. DEXAMETHASONE [Suspect]
     Indication: PRODUCT USED FOR UNKNOWN INDICATION
     Route: 065

REACTIONS (1)
  - CHEST PAIN [None]
